FAERS Safety Report 22184140 (Version 1)
Quarter: 2023Q2

REPORT INFORMATION
  Report Type: Spontaneous
  Country: US (occurrence: None)
  Receive Date: 20230407
  Receipt Date: 20230407
  Transmission Date: 20230722
  Serious: No
  Sender: FDA-Public Use
  Company Number: US-ALM-HQ-US-2023-0714

PATIENT
  Sex: Female

DRUGS (1)
  1. KLISYRI [Suspect]
     Active Substance: TIRBANIBULIN
     Dosage: 05 APPLICATIONS
     Dates: start: 20230315, end: 20230319

REACTIONS (6)
  - Erythema [Unknown]
  - Skin tightness [Unknown]
  - Application site dryness [Unknown]
  - Skin wrinkling [Unknown]
  - Application site discolouration [Unknown]
  - Application site erythema [Unknown]
